FAERS Safety Report 10470568 (Version 2)
Quarter: 2014Q4

REPORT INFORMATION
  Report Type: Spontaneous
  Country: US (occurrence: US)
  Receive Date: 20140923
  Receipt Date: 20141009
  Transmission Date: 20150528
  Serious: No
  Sender: FDA-Public Use
  Company Number: US-PFIZER INC-2014258341

PATIENT
  Age: 34 Year
  Sex: Male
  Weight: 75 kg

DRUGS (11)
  1. OXYCODONE [Concomitant]
     Active Substance: OXYCODONE
     Dosage: 10 MG, 4X/DAY
  2. OXYCODONE [Concomitant]
     Active Substance: OXYCODONE
     Dosage: 5 MG, 4X/DAY
  3. ELAVIL [Concomitant]
     Active Substance: AMITRIPTYLINE HYDROCHLORIDE
     Dosage: 150 MG, UNK (Q HS)
     Route: 046
  4. LEVITRA [Concomitant]
     Active Substance: VARDENAFIL HYDROCHLORIDE TRIHYDRATE
     Dosage: 20 MG, 1X/DAY
  5. FOLIC ACID. [Concomitant]
     Active Substance: FOLIC ACID
     Dosage: 1 MG, 1X/DAY
  6. CENTRUM [Concomitant]
     Active Substance: VITAMINS
     Dosage: 1 DF, 1X/DAY
  7. CLONAZEPAM. [Concomitant]
     Active Substance: CLONAZEPAM
     Dosage: 1 MG, 3X/DAY
  8. CLONAZEPAM. [Concomitant]
     Active Substance: CLONAZEPAM
     Dosage: 2 MG, 2X/DAY
     Dates: start: 201407
  9. LYRICA [Suspect]
     Active Substance: PREGABALIN
     Indication: NEUROPATHY PERIPHERAL
     Dosage: 150 MG, 3X/DAY
     Route: 048
  10. CITALOPRAM [Concomitant]
     Active Substance: CITALOPRAM HYDROBROMIDE
     Dosage: 40 MG, 1X/DAY
  11. GEODON [Concomitant]
     Active Substance: ZIPRASIDONE HYDROCHLORIDE\ZIPRASIDONE MESYLATE
     Dosage: 80 MG, 2X/DAY

REACTIONS (5)
  - Pain in extremity [Unknown]
  - Asthenia [Unknown]
  - Peripheral swelling [Unknown]
  - Anaemia [Unknown]
  - Burning sensation [Unknown]
